FAERS Safety Report 7991573-0 (Version None)
Quarter: 2011Q4

REPORT INFORMATION
  Report Type: 
  Country: None (occurrence: None)
  Receive Date: 20111219
  Receipt Date: 20111209
  Transmission Date: 20120403
  Serious: Yes (Other)
  Sender: FDA-Public Use
  Company Number: DE-ASTRAZENECA-2011SE19881

PATIENT
  Age: 13002 Day
  Sex: Female
  Weight: 97.3 kg

DRUGS (4)
  1. SEROQUEL [Suspect]
     Indication: DEPRESSION
     Route: 048
     Dates: end: 20070101
  2. ESCITALOPRAM [Suspect]
     Route: 048
     Dates: start: 20030101
  3. INSULINE [Concomitant]
  4. SEROQUEL [Suspect]
     Route: 048
     Dates: start: 20100101

REACTIONS (2)
  - MATERNAL EXPOSURE DURING PREGNANCY [None]
  - GESTATIONAL DIABETES [None]
